FAERS Safety Report 4496639-8 (Version None)
Quarter: 2004Q4

REPORT INFORMATION
  Report Type: 
  Country: None (occurrence: None)
  Receive Date: 20040923
  Receipt Date: 20040525
  Transmission Date: 20050328
  Serious: No
  Sender: FDA-Public Use
  Company Number: WAES 0404USA00908

PATIENT
  Age: 44 Year
  Sex: Female
  Weight: 94.8018 kg

DRUGS (10)
  1. INVANZ [Suspect]
     Indication: CELLULITIS
     Dosage: 0.5 GM/1X/IV
     Route: 042
     Dates: start: 20040331, end: 20040331
  2. LOVENOX [Concomitant]
  3. PREMARIN [Concomitant]
  4. PROMETRIUM [Concomitant]
  5. SYNTHROID [Concomitant]
  6. TYLENOL PM [Concomitant]
  7. ZOLOFT [Concomitant]
  8. ANALGESIC OR ANESTHETIC (UNSPECI [Concomitant]
  9. HYDROCHLOROTHIAZIDE [Concomitant]
  10. LISINOPRIL [Concomitant]

REACTIONS (11)
  - BLOOD PRESSURE INCREASED [None]
  - DIZZINESS [None]
  - DRUG HYPERSENSITIVITY [None]
  - DYSARTHRIA [None]
  - DYSPNOEA [None]
  - FLUSHING [None]
  - HYPERTENSION [None]
  - LETHARGY [None]
  - MENTAL STATUS CHANGES [None]
  - PARAESTHESIA [None]
  - SENSATION OF HEAVINESS [None]
